FAERS Safety Report 6805397-0 (Version None)
Quarter: 2010Q2

REPORT INFORMATION
  Report Type: 
  Country: None (occurrence: None)
  Receive Date: 20100628
  Receipt Date: 20071128
  Transmission Date: 20101027
  Serious: No
  Sender: FDA-Public Use
  Company Number: US-PFIZER INC-2007097072

PATIENT
  Sex: Female

DRUGS (3)
  1. GEODON [Suspect]
     Indication: BIPOLAR DISORDER
  2. TEGRETOL [Interacting]
     Indication: MOOD SWINGS
  3. ADDERALL 10 [Concomitant]

REACTIONS (4)
  - BLOOD PROLACTIN INCREASED [None]
  - DRUG INTERACTION [None]
  - GALACTORRHOEA [None]
  - MOOD SWINGS [None]
